FAERS Safety Report 5190212-4 (Version None)
Quarter: 2006Q4

REPORT INFORMATION
  Report Type: 
  Country: None (occurrence: None)
  Receive Date: 20061222
  Receipt Date: 20060915
  Transmission Date: 20070319
  Serious: No
  Sender: FDA-Public Use
  Company Number: US-AMGEN-KDL193634

PATIENT
  Sex: Female

DRUGS (2)
  1. ARANESP [Suspect]
     Dates: start: 20060906
  2. PHENERGAN [Concomitant]
     Dates: start: 20060906

REACTIONS (1)
  - BLOOD UREA INCREASED [None]
